FAERS Safety Report 15191512 (Version 1)
Quarter: 2018Q3

REPORT INFORMATION
  Report Type: Report from Study
  Country: US (occurrence: US)
  Receive Date: 20180724
  Receipt Date: 20180724
  Transmission Date: 20181010
  Serious: Yes (Other)
  Sender: FDA-Public Use
  Company Number: US-AMGEN-USASL2018040511

PATIENT
  Sex: Male

DRUGS (1)
  1. KYPROLIS [Suspect]
     Active Substance: CARFILZOMIB
     Indication: PLASMA CELL MYELOMA
     Dosage: UNK
     Route: 065

REACTIONS (9)
  - Peripheral swelling [Unknown]
  - Skin discolouration [Unknown]
  - Contusion [Unknown]
  - Joint swelling [Unknown]
  - Malaise [Unknown]
  - Asthenia [Unknown]
  - Atrial fibrillation [Unknown]
  - Fatigue [Unknown]
  - Dizziness [Unknown]
